FAERS Safety Report 6655987-3 (Version None)
Quarter: 2010Q1

REPORT INFORMATION
  Report Type: 
  Country: None (occurrence: None)
  Receive Date: 20100329
  Receipt Date: 20100317
  Transmission Date: 20100710
  Serious: Yes (Other)
  Sender: FDA-Public Use
  Company Number: US-PFIZER INC-2010011221

PATIENT
  Sex: Female
  Weight: 72 kg

DRUGS (6)
  1. SUTENT [Suspect]
     Indication: METASTASIS
     Dosage: 50 MG, DAILY
     Route: 048
     Dates: start: 20091101
  2. ASPIRIN [Concomitant]
     Dosage: 81 MG, UNK
  3. ALPHAGAN [Concomitant]
     Dosage: UNK, 2X/DAY
  4. XALATAN [Concomitant]
  5. COSOPT [Concomitant]
     Dosage: UNK, 2X/DAY
  6. CALCIUM [Concomitant]

REACTIONS (4)
  - DYSPNOEA [None]
  - FLUID RETENTION [None]
  - HAEMOGLOBIN DECREASED [None]
  - HYPERTENSION [None]
